FAERS Safety Report 7635476-X (Version None)
Quarter: 2011Q3

REPORT INFORMATION
  Report Type: 
  Country: None (occurrence: None)
  Receive Date: 20110726
  Receipt Date: 20110726
  Transmission Date: 20111222
  Serious: No
  Sender: FDA-Public Use
  Company Number: None

PATIENT
  Age: 28 Year
  Sex: Male
  Weight: 90.718 kg

DRUGS (1)
  1. DEPAKOTE [Suspect]
     Dosage: 1500 MG
     Route: 048

REACTIONS (1)
  - MENTAL STATUS CHANGES [None]
